FAERS Safety Report 9770547 (Version 1)
Quarter: 2013Q4

REPORT INFORMATION
  Report Type: Spontaneous
  Country: US (occurrence: US)
  Receive Date: 20131218
  Receipt Date: 20131218
  Transmission Date: 20140711
  Serious: Yes (Other)
  Sender: FDA-Public Use
  Company Number: US-TEVA-448471USA

PATIENT
  Sex: Female

DRUGS (3)
  1. PARAGARD 380A [Suspect]
     Indication: CONTRACEPTION
     Route: 015
     Dates: start: 2009, end: 20131025
  2. ANTI INFLAMMATORY MEDICATION [Concomitant]
     Indication: FIBROMYALGIA
  3. WELLBUTRIN [Concomitant]
     Indication: MOOD DISORDER DUE TO A GENERAL MEDICAL CONDITION

REACTIONS (8)
  - Pelvic inflammatory disease [Recovered/Resolved]
  - Head injury [Not Recovered/Not Resolved]
  - Fibromyalgia [Not Recovered/Not Resolved]
  - Abdominal pain [Recovered/Resolved]
  - Feeling abnormal [Recovered/Resolved]
  - Nasal disorder [Not Recovered/Not Resolved]
  - Nausea [Not Recovered/Not Resolved]
  - Metrorrhagia [Recovered/Resolved]
